FAERS Safety Report 13674522 (Version 3)
Quarter: 2017Q4

REPORT INFORMATION
  Report Type: Spontaneous
  Country: US (occurrence: US)
  Receive Date: 20170621
  Receipt Date: 20171102
  Transmission Date: 20180320
  Serious: No
  Sender: FDA-Public Use
  Company Number: US-BAYER-2017-120227

PATIENT
  Age: 55 Year
  Sex: Male

DRUGS (6)
  1. BETASERON [Suspect]
     Active Substance: INTERFERON BETA-1B
     Indication: MULTIPLE SCLEROSIS
     Dosage: 0.25 MG, QOD
     Route: 058
  2. IBUPROFEN. [Concomitant]
     Active Substance: IBUPROFEN
     Dosage: UNK
     Dates: start: 20170619
  3. CALCIUM [Concomitant]
     Active Substance: CALCIUM
     Dosage: UNK
     Dates: start: 20170619
  4. CARBAMAZEPIN [Concomitant]
     Active Substance: CARBAMAZEPINE
     Dosage: UNK
     Dates: start: 20170619
  5. MULTIVITAMIN [Concomitant]
     Active Substance: VITAMINS
     Dosage: UNK
     Dates: start: 20170619
  6. BETASERON [Suspect]
     Active Substance: INTERFERON BETA-1B
     Indication: POLYNEUROPATHY
     Dosage: 0.3 MG, QOD
     Route: 058
     Dates: start: 20170622

REACTIONS (3)
  - Visual impairment [None]
  - Injection site reaction [None]
  - Pain in jaw [None]

NARRATIVE: CASE EVENT DATE: 20170815
